FAERS Safety Report 12463685 (Version 3)
Quarter: 2016Q2

REPORT INFORMATION
  Report Type: Spontaneous
  Country: US (occurrence: US)
  Receive Date: 20160614
  Receipt Date: 20160621
  Transmission Date: 20160815
  Serious: Yes (Other)
  Sender: FDA-Public Use
  Company Number: US-PFIZER INC-2016286964

PATIENT
  Age: 69 Year
  Sex: Female

DRUGS (2)
  1. IBRANCE [Suspect]
     Active Substance: PALBOCICLIB
     Dosage: 100 MG, UNK
     Dates: start: 20160527
  2. FASLODEX [Suspect]
     Active Substance: FULVESTRANT
     Dosage: UNK

REACTIONS (8)
  - Asthenia [Unknown]
  - Dizziness [Unknown]
  - Hot flush [Unknown]
  - Dyspnoea [Unknown]
  - Red blood cell count abnormal [Unknown]
  - Anaemia [Unknown]
  - Neutropenia [Unknown]
  - Nausea [Unknown]
